FAERS Safety Report 23018133 (Version 8)
Quarter: 2024Q4

REPORT INFORMATION
  Report Type: Report from Study
  Country: CN (occurrence: CN)
  Receive Date: 20231003
  Receipt Date: 20241206
  Transmission Date: 20250115
  Serious: Yes (Hospitalization)
  Sender: ABBVIE
  Company Number: CN-ABBVIE-5429287

PATIENT
  Age: 25 Year
  Sex: Female
  Weight: 60 kg

DRUGS (23)
  1. HUMIRA [Suspect]
     Active Substance: ADALIMUMAB
     Indication: Crohn^s disease
     Dosage: FORM STRENGTH: 40 MILLIGRAM
     Route: 058
     Dates: start: 20230904, end: 20230904
  2. HUMIRA [Suspect]
     Active Substance: ADALIMUMAB
     Dosage: FORM STRENGTH: 40 MILLIGRAM
     Route: 058
     Dates: start: 20230917, end: 20230917
  3. HUMIRA [Suspect]
     Active Substance: ADALIMUMAB
     Dosage: FORM STRENGTH: 40 MILLIGRAM
     Route: 058
     Dates: start: 20231008, end: 20240219
  4. HUMIRA [Suspect]
     Active Substance: ADALIMUMAB
     Dosage: FORM STRENGTH: 40 MILLIGRAM
     Route: 058
     Dates: start: 20240310, end: 20240331
  5. VITAMIN B6 [Concomitant]
     Active Substance: PYRIDOXINE HYDROCHLORIDE
     Indication: Vitamin supplementation
     Route: 042
     Dates: start: 20230930, end: 20231003
  6. VALPROATE SODIUM [Concomitant]
     Active Substance: VALPROATE SODIUM
     Indication: Bipolar disorder
     Dosage: FREQUENCY: EVERY NIGHT; SUSTAINED-RELEASE TABLETS
     Route: 048
     Dates: start: 2013
  7. QUETIAPINE FUMARATE [Concomitant]
     Active Substance: QUETIAPINE FUMARATE
     Indication: Bipolar disorder
     Dosage: 300 MG EVERY NIGHT, 100 MG DAILY
     Route: 048
     Dates: start: 2013
  8. RIVAROXABAN [Concomitant]
     Active Substance: RIVAROXABAN
     Indication: Anticoagulant therapy
     Route: 048
     Dates: start: 20231010, end: 20231013
  9. RIVAROXABAN [Concomitant]
     Active Substance: RIVAROXABAN
     Indication: Anticoagulant therapy
     Route: 048
     Dates: start: 20231008, end: 20231009
  10. ENOXAPARIN SODIUM [Concomitant]
     Active Substance: ENOXAPARIN SODIUM
     Indication: Anticoagulant therapy
     Route: 058
     Dates: start: 20231001, end: 20231007
  11. THALIDOMIDE [Concomitant]
     Active Substance: THALIDOMIDE
     Indication: Erythema nodosum
     Dosage: EVERY NIGHT
     Route: 048
     Dates: start: 202307, end: 202310
  12. THALIDOMIDE [Concomitant]
     Active Substance: THALIDOMIDE
     Indication: Erythema nodosum
     Dosage: EVERY NIGHT
     Route: 048
     Dates: start: 202310, end: 202311
  13. MELOXICAM [Concomitant]
     Active Substance: MELOXICAM
     Indication: Arthralgia
     Route: 048
     Dates: start: 202308, end: 202310
  14. Polyethylene glycol electrolytes powder(iii) [Concomitant]
     Indication: Colonoscopy
     Dosage: 294.36 GRAM?FREQUENCY: ONCE
     Route: 048
     Dates: start: 20240222, end: 20240222
  15. TEPRENONE [Concomitant]
     Active Substance: TEPRENONE
     Indication: Gastrointestinal disorder prophylaxis
     Route: 048
     Dates: start: 20231004, end: 20231005
  16. MESALAMINE [Concomitant]
     Active Substance: MESALAMINE
     Indication: Crohn^s disease
     Dosage: TIME INTERVAL: 0.33333333 DAYS: 3 GRAM?SUSTAINED-RELEASE GRANULES
     Route: 048
     Dates: start: 202306, end: 20231225
  17. ESOMEPRAZOLE MAGNESIUM [Concomitant]
     Active Substance: ESOMEPRAZOLE MAGNESIUM
     Indication: Abdominal pain
     Dosage: LAST ADMIN DATE: OCT 2023
     Route: 048
     Dates: start: 20231009
  18. ESOMEPRAZOLE MAGNESIUM [Concomitant]
     Active Substance: ESOMEPRAZOLE MAGNESIUM
     Indication: Abdominal pain
     Dosage: ENTERIC-COATED CAPSULES
     Route: 048
     Dates: start: 20231002, end: 20231009
  19. ESOMEPRAZOLE MAGNESIUM [Concomitant]
     Active Substance: ESOMEPRAZOLE MAGNESIUM
     Indication: Abdominal pain
     Route: 048
     Dates: start: 20240226
  20. LORATADINE [Concomitant]
     Active Substance: LORATADINE
     Indication: Allergy prophylaxis
     Dosage: EVERY NIGHT
     Route: 048
     Dates: start: 20231002, end: 20231008
  21. VITAMIN C [Concomitant]
     Active Substance: ASCORBIC ACID
     Indication: Abdominal pain
     Route: 042
     Dates: start: 20230930, end: 20231002
  22. VITAMIN C [Concomitant]
     Active Substance: ASCORBIC ACID
     Indication: Abdominal pain
     Dosage: DOSE: 1 GRAM
     Route: 042
     Dates: start: 20240301, end: 20240302
  23. MANNITOL [Concomitant]
     Active Substance: MANNITOL
     Indication: Colonoscopy
     Dosage: 250 MILLILITER?FREQUENCY: ONCE
     Route: 048
     Dates: start: 20240222, end: 20240222

REACTIONS (7)
  - Erythema nodosum [Recovered/Resolved]
  - Pyrexia [Recovered/Resolved]
  - Aphthous ulcer [Recovered/Resolved]
  - Hypoaesthesia [Recovered/Resolved]
  - Abdominal pain [Not Recovered/Not Resolved]
  - Constipation [Recovered/Resolved]
  - Pyrexia [Recovered/Resolved]

NARRATIVE: CASE EVENT DATE: 20230918
